FAERS Safety Report 5282604-X (Version None)
Quarter: 2007Q1

REPORT INFORMATION
  Report Type: 
  Country: None (occurrence: None)
  Receive Date: 20070326
  Receipt Date: 20070313
  Transmission Date: 20070707
  Serious: Yes (Other)
  Sender: FDA-Public Use
  Company Number: B0462873A

PATIENT
  Sex: 0

DRUGS (6)
  1. THORAZINE [Suspect]
     Dosage: TRANSPLACENTARY
     Route: 064
  2. RISPERIDONE [Suspect]
     Dosage: TRANSPLACENTARY
     Route: 064
  3. CLOXAZOLAM (FORMULATION UNKNOWN) (CLOXAZOLAM) [Suspect]
     Dosage: TRANSPLACENTARY
     Route: 064
  4. PROMETHAZINE [Suspect]
     Dosage: TRANSPLACENTARY
     Route: 064
  5. PHENOBARBITAL TAB [Suspect]
     Dosage: TRANSPLACENTARY
     Route: 064
  6. CARBAMAZEPINE [Suspect]
     Dosage: TRANSPLACENTARY
     Route: 064

REACTIONS (8)
  - BRADYCARDIA NEONATAL [None]
  - CEREBRAL HAEMORRHAGE NEONATAL [None]
  - CONVULSION NEONATAL [None]
  - DRUG EXPOSURE DURING PREGNANCY [None]
  - DRUG WITHDRAWAL SYNDROME NEONATAL [None]
  - DYSPHAGIA [None]
  - FOETAL DISTRESS SYNDROME [None]
  - NEONATAL DISORDER [None]
